FAERS Safety Report 8520859-6 (Version None)
Quarter: 2012Q3

REPORT INFORMATION
  Report Type: 
  Country: None (occurrence: None)
  Receive Date: 20120719
  Receipt Date: 20120710
  Transmission Date: 20120928
  Serious: Yes (Other)
  Sender: FDA-Public Use
  Company Number: ZA-JNJFOC-20120507345

PATIENT
  Sex: Female

DRUGS (3)
  1. REVELLEX [Suspect]
     Indication: CROHN'S DISEASE
     Route: 042
     Dates: start: 20120420, end: 20120420
  2. PENTASA [Concomitant]
     Indication: CROHN'S DISEASE
     Dosage: SINCE 2 YEARS
     Route: 048
  3. ALL OTHER THERAPEUTICS [Concomitant]
     Indication: CROHN'S DISEASE
     Route: 065

REACTIONS (4)
  - PAIN [None]
  - MUSCLE SPASMS [None]
  - CHEST PAIN [None]
  - BACK PAIN [None]
